FAERS Safety Report 20116133 (Version 1)
Quarter: 2021Q4

REPORT INFORMATION
  Report Type: Spontaneous
  Country: VE (occurrence: VE)
  Receive Date: 20211126
  Receipt Date: 20211126
  Transmission Date: 20220303
  Serious: Yes (Other)
  Sender: FDA-Public Use
  Company Number: VE-NOVARTISPH-NVSC2021VE250169

PATIENT
  Sex: Male

DRUGS (1)
  1. GLIVEC [Suspect]
     Active Substance: IMATINIB MESYLATE
     Indication: Chronic myeloid leukaemia
     Dosage: 400 MG (4X100 MG)
     Route: 065

REACTIONS (5)
  - Pneumonia [Unknown]
  - SARS-CoV-2 test positive [Unknown]
  - Peripheral swelling [Unknown]
  - Pain in extremity [Unknown]
  - Pyrexia [Unknown]
